FAERS Safety Report 11663545 (Version 1)
Quarter: 2015Q4

REPORT INFORMATION
  Report Type: Spontaneous
  Country: TW (occurrence: TW)
  Receive Date: 20151027
  Receipt Date: 20151027
  Transmission Date: 20160304
  Serious: Yes (Other)
  Sender: FDA-Public Use
  Company Number: TW-AMGEN-TWNSP2015112087

PATIENT
  Age: 43 Year
  Sex: Male

DRUGS (1)
  1. ENBREL [Suspect]
     Active Substance: ETANERCEPT
     Indication: PSORIATIC ARTHROPATHY
     Dosage: 50 MG, ONCE PER WEEK
     Route: 058
     Dates: start: 20140212

REACTIONS (4)
  - Erythema [Unknown]
  - Skin exfoliation [Unknown]
  - Psoriatic arthropathy [Unknown]
  - Disease recurrence [Unknown]
